FAERS Safety Report 6111210-X (Version None)
Quarter: 2009Q1

REPORT INFORMATION
  Report Type: 
  Country: None (occurrence: None)
  Receive Date: 20090309
  Receipt Date: 20090303
  Transmission Date: 20090719
  Serious: Yes (Death, Life-Threatening)
  Sender: FDA-Public Use
  Company Number: GXKR2009DE02525

PATIENT
  Age: 74 Year
  Sex: Male
  Weight: 125 kg

DRUGS (8)
  1. BISOPROLOL FUMARATE [Suspect]
     Indication: HYPERTENSION
     Dosage: 5 MG/DAILY, ORAL
     Route: 048
     Dates: start: 20050101, end: 20080927
  2. ENALAPRIL                  (ENALAPRIL MALEATE) TABLET [Suspect]
     Indication: RENAL FAILURE
     Dosage: 5 MG, 2 IN DAY, ORAL
     Route: 048
     Dates: start: 20080101, end: 20080926
  3. ISOPHANE INSULIN [Suspect]
     Indication: TYPE 2 DIABETES MELLITUS
     Dosage: 1-0-0.1, SINCE 6-7 WEEKS 60 IU (BEFORE 45 IU), 2 IN DAY, SUBCUTANEOUS
     Route: 058
     Dates: start: 20050101, end: 20080921
  4. XIPAMIDE         (XIPAMIDE) [Concomitant]
  5. SIMVASTATIN [Concomitant]
  6. FUROSEMIDE [Concomitant]
  7. ACETYLSALICYLIC ACID SRT [Concomitant]
  8. ALLOPURINOL [Concomitant]

REACTIONS (3)
  - CARDIAC ARREST [None]
  - DRUG INTERACTION [None]
  - HYPOGLYCAEMIA [None]
